FAERS Safety Report 7390551-2 (Version None)
Quarter: 2011Q2

REPORT INFORMATION
  Report Type: 
  Country: None (occurrence: None)
  Receive Date: 20110403
  Receipt Date: 20110321
  Transmission Date: 20111010
  Serious: Yes (Hospitalization)
  Sender: FDA-Public Use
  Company Number: HU-BRISTOL-MYERS SQUIBB COMPANY-15611957

PATIENT
  Age: 53 Year
  Sex: Female

DRUGS (7)
  1. ARIPIPRAZOLE [Suspect]
     Indication: SCHIZOPHRENIA
     Route: 048
     Dates: start: 20101208, end: 20110309
  2. RIVOTRIL [Concomitant]
     Indication: ANXIETY
     Dosage: INCREASED TO 6MG/DAY
     Dates: start: 20100503
  3. QUAMATEL [Concomitant]
     Dates: start: 20101127
  4. STILNOX [Concomitant]
     Dates: start: 20101124
  5. KEMADRIN [Concomitant]
     Dates: start: 20101121
  6. FURON [Concomitant]
     Dates: start: 20110302
  7. POTASSIUM CHLORIDE [Concomitant]
     Dates: start: 20110302

REACTIONS (1)
  - SCHIZOPHRENIA [None]
